FAERS Safety Report 9186855 (Version 1)
Quarter: 2013Q1

REPORT INFORMATION
  Report Type: Spontaneous
  Country: US (occurrence: US)
  Receive Date: 20130325
  Receipt Date: 20130325
  Transmission Date: 20140127
  Serious: Yes (Death)
  Sender: FDA-Public Use
  Company Number: US-GLAXOSMITHKLINE-A0778534A

PATIENT
  Sex: Male
  Weight: 129.1 kg

DRUGS (1)
  1. AVANDIA [Suspect]
     Indication: DIABETES MELLITUS
     Dosage: 4MG PER DAY
     Route: 048
     Dates: start: 20010322

REACTIONS (4)
  - Cardiac arrest [Fatal]
  - Myocardial infarction [Unknown]
  - Cardiac failure congestive [Fatal]
  - Coronary artery disease [Fatal]
